FAERS Safety Report 4677407-0 (Version None)
Quarter: 2005Q2

REPORT INFORMATION
  Report Type: 
  Country: None (occurrence: None)
  Receive Date: 20050527
  Receipt Date: 20050527
  Transmission Date: 20051028
  Serious: Yes (Hospitalization)
  Sender: FDA-Public Use
  Company Number: None

PATIENT
  Age: 74 Year
  Sex: Male
  Weight: 90 kg

DRUGS (14)
  1. COUMADIN [Suspect]
     Indication: DEEP VEIN THROMBOSIS
     Dosage: 2MG  DAILY ORAL
     Route: 048
     Dates: start: 20000501, end: 20050526
  2. COUMADIN [Suspect]
     Indication: FACTOR V LEIDEN MUTATION
     Dosage: 2MG  DAILY ORAL
     Route: 048
     Dates: start: 20000501, end: 20050526
  3. ASPIRIN [Concomitant]
  4. CITALOPRAM [Concomitant]
  5. ISOSORBIDE MONONITRATE SA [Concomitant]
  6. METOPROLOL [Concomitant]
  7. RANITIDINE [Concomitant]
  8. OMEPRAZOLE [Concomitant]
  9. TOLTERODINE [Concomitant]
  10. SIMVASTATIN [Concomitant]
  11. FOLIC ACID [Concomitant]
  12. TRIAMCINOLONE [Concomitant]
  13. DOCUSATE [Concomitant]
  14. FLUTICASONE PROPIONATE [Concomitant]

REACTIONS (3)
  - DIARRHOEA [None]
  - GASTROENTERITIS VIRAL [None]
  - HAEMATURIA [None]
